FAERS Safety Report 6264296-6 (Version None)
Quarter: 2009Q3

REPORT INFORMATION
  Report Type: 
  Country: None (occurrence: None)
  Receive Date: 20090710
  Receipt Date: 20090701
  Transmission Date: 20100115
  Serious: Yes (Hospitalization, Disabling)
  Sender: FDA-Public Use
  Company Number: A0722342A

PATIENT
  Age: 43 Year
  Sex: Female

DRUGS (1)
  1. AMOXICILLIN AND CLAVULANATE POTASSIUM [Suspect]
     Indication: DRUG USE FOR UNKNOWN INDICATION
     Route: 048
     Dates: start: 20050329

REACTIONS (6)
  - BLINDNESS [None]
  - DRY MOUTH [None]
  - KERATOCONJUNCTIVITIS SICCA [None]
  - OCULAR SURFACE DISEASE [None]
  - SCAR [None]
  - STEVENS-JOHNSON SYNDROME [None]
